FAERS Safety Report 21930288 (Version 2)
Quarter: 2023Q1

REPORT INFORMATION
  Report Type: Spontaneous
  Country: US (occurrence: US)
  Receive Date: 20230131
  Receipt Date: 20230201
  Transmission Date: 20230417
  Serious: Yes (Other)
  Sender: FDA-Public Use
  Company Number: US-ABBVIE-4289566

PATIENT
  Sex: Female

DRUGS (1)
  1. SYNTHROID [Suspect]
     Active Substance: LEVOTHYROXINE SODIUM
     Indication: Product used for unknown indication
     Dosage: 88 MICROGRAM
     Route: 048

REACTIONS (6)
  - Deafness [Unknown]
  - Product use issue [Not Recovered/Not Resolved]
  - Hypoacusis [Unknown]
  - Emotional distress [Unknown]
  - Transient ischaemic attack [Unknown]
  - Cardiovascular symptom [Unknown]
